FAERS Safety Report 9514955 (Version 1)
Quarter: 2013Q3

REPORT INFORMATION
  Report Type: Spontaneous
  Country: BR (occurrence: BR)
  Receive Date: 20130911
  Receipt Date: 20130911
  Transmission Date: 20140515
  Serious: Yes (Other)
  Sender: FDA-Public Use
  Company Number: BR-BAYER-2013-106080

PATIENT
  Age: 30 Year
  Sex: Female

DRUGS (2)
  1. YAZ (24) [Suspect]
     Indication: CONTRACEPTION
     Dosage: UNK
     Route: 048
     Dates: start: 2012, end: 201305
  2. BEROTEC [Concomitant]
     Indication: ASTHMA
     Dosage: UNK
     Route: 048
     Dates: start: 19830214

REACTIONS (7)
  - High risk pregnancy [Not Recovered/Not Resolved]
  - Haemorrhage in pregnancy [Recovered/Resolved]
  - Uterine leiomyoma [Not Recovered/Not Resolved]
  - Blood pressure increased [Not Recovered/Not Resolved]
  - Weight decreased [Not Recovered/Not Resolved]
  - Drug ineffective [None]
  - Inappropriate schedule of drug administration [None]
